FAERS Safety Report 13589812 (Version 5)
Quarter: 2017Q3

REPORT INFORMATION
  Report Type: Spontaneous
  Country: US (occurrence: US)
  Receive Date: 20170529
  Receipt Date: 20170808
  Transmission Date: 20171127
  Serious: Yes (Other)
  Sender: FDA-Public Use
  Company Number: US-CONCORDIA PHARMACEUTICALS INC.-GSH201705-003234

PATIENT
  Age: 95 Year
  Sex: Female

DRUGS (4)
  1. DIGOXIN. [Suspect]
     Active Substance: DIGOXIN
  2. METOPROLOL SUCCINATE. [Concomitant]
     Active Substance: METOPROLOL SUCCINATE
  3. PREDNISONE. [Suspect]
     Active Substance: PREDNISONE
  4. ASPIRIN. [Concomitant]
     Active Substance: ASPIRIN

REACTIONS (3)
  - Drug interaction [Unknown]
  - Toxicity to various agents [Unknown]
  - Xanthopsia [Recovered/Resolved]
